FAERS Safety Report 6298302-X (Version None)
Quarter: 2009Q3

REPORT INFORMATION
  Report Type: 
  Country: None (occurrence: None)
  Receive Date: 20090805
  Receipt Date: 20090727
  Transmission Date: 20100115
  Serious: Yes (Other)
  Sender: FDA-Public Use
  Company Number: FR-WYE-H09756709

PATIENT
  Sex: Male

DRUGS (11)
  1. CORDARONE [Interacting]
     Indication: ATRIAL FIBRILLATION
     Route: 048
     Dates: start: 20090301
  2. ATORVASTATIN CALCIUM [Suspect]
     Route: 048
  3. EFFERALGAN [Concomitant]
     Dosage: UP TO 3 G IF NEEDED
     Route: 048
  4. ZYLORIC [Concomitant]
     Route: 048
  5. KARDEGIC [Concomitant]
     Route: 048
  6. LASIX [Concomitant]
     Dosage: 40 MG IN AM / 20 MG IN PM
     Route: 048
  7. SELOKEN [Concomitant]
     Route: 048
  8. TRANXENE [Concomitant]
     Indication: ANXIETY
     Dosage: UP TO 30 MG DAILY IF NEEDED
     Route: 048
  9. PREVISCAN [Interacting]
     Indication: THROMBOSIS PROPHYLAXIS
     Dosage: 10 MG EVERY OTHER DAY ALTERNATIVELY WITH 15 MG
     Route: 048
     Dates: end: 20090609
  10. PREVISCAN [Interacting]
     Route: 048
     Dates: start: 20090613
  11. DIASTABOL [Concomitant]
     Route: 048

REACTIONS (4)
  - DRUG INTERACTION [None]
  - DYSPNOEA [None]
  - HAEMATURIA [None]
  - INTERNATIONAL NORMALISED RATIO INCREASED [None]
